FAERS Safety Report 4457647-6 (Version None)
Quarter: 2004Q3

REPORT INFORMATION
  Report Type: 
  Country: None (occurrence: None)
  Receive Date: 20040922
  Receipt Date: 20040903
  Transmission Date: 20050211
  Serious: Yes (Hospitalization, Other)
  Sender: FDA-Public Use
  Company Number: USA040771788

PATIENT
  Age: 48 Year
  Sex: Male
  Weight: 95 kg

DRUGS (1)
  1. CIALIS [Suspect]
     Dosage: 20 MG
     Dates: start: 20040501

REACTIONS (4)
  - BLOOD GLUCOSE INCREASED [None]
  - PANCREATIC DISORDER [None]
  - PANCREATITIS [None]
  - ULTRASOUND ABDOMEN ABNORMAL [None]
